FAERS Safety Report 17573946 (Version 1)
Quarter: 2020Q1

REPORT INFORMATION
  Report Type: Spontaneous
  Country: ES (occurrence: ES)
  Receive Date: 20200323
  Receipt Date: 20200323
  Transmission Date: 20200409
  Serious: Yes (Other)
  Sender: FDA-Public Use
  Company Number: ES-PRAGMA PHARMACEUTICALS, LLC-2020PRG00022

PATIENT
  Age: 18 Year
  Sex: Male

DRUGS (8)
  1. AMOXICILLIN-CLAVULANATE [Suspect]
     Active Substance: AMOXICILLIN\CLAVULANIC ACID
     Indication: APPENDICITIS
     Dosage: UNK
     Route: 042
  2. METAMIZOLE [Suspect]
     Active Substance: METAMIZOLE
     Indication: APPENDICITIS
     Route: 042
  3. METAMIZOLE [Suspect]
     Active Substance: METAMIZOLE
     Indication: ALLERGY TEST
     Dosage: 400 MG/ML
     Route: 023
  4. AMOXICILLIN-CLAVULANATE [Suspect]
     Active Substance: AMOXICILLIN\CLAVULANIC ACID
     Indication: ALLERGY TEST
     Dosage: 20/4 MG/MLUNK
     Route: 023
  5. AMOXICILLIN-CLAVULANATE [Suspect]
     Active Substance: AMOXICILLIN\CLAVULANIC ACID
     Dosage: 500/125 MG (CUMULATIVE DOSE AMOXICILLIN 875 MG/CLAVULANIC ACID 218.75 MG)
     Route: 023
  6. AMOXICILLIN-CLAVULANATE [Suspect]
     Active Substance: AMOXICILLIN\CLAVULANIC ACID
     Dosage: 500/125 MG
     Route: 023
  7. METAMIZOLE [Suspect]
     Active Substance: METAMIZOLE
     Dosage: 10 MG/ML
     Route: 023
  8. METAMIZOLE [Suspect]
     Active Substance: METAMIZOLE
     Dosage: 4 MG/ML
     Route: 023

REACTIONS (1)
  - Enterocolitis [Unknown]
